FAERS Safety Report 15846714 (Version 5)
Quarter: 2019Q2

REPORT INFORMATION
  Report Type: Spontaneous
  Country: DE (occurrence: DE)
  Receive Date: 20190121
  Receipt Date: 20190618
  Transmission Date: 20190711
  Serious: Yes (Hospitalization, Other)
  Sender: FDA-Public Use
  Company Number: DE-SUN PHARMACEUTICAL INDUSTRIES LTD-2018RR-196378

PATIENT
  Age: 68 Year
  Sex: Male

DRUGS (19)
  1. PREGABALIN. [Suspect]
     Active Substance: PREGABALIN
     Indication: POST HERPETIC NEURALGIA
     Dosage: UNK
     Route: 065
  2. AMBROXOL [Suspect]
     Active Substance: AMBROXOL
     Indication: PRODUCT USED FOR UNKNOWN INDICATION
     Dosage: OINTMENT
     Route: 061
  3. LIDOCAINE. [Suspect]
     Active Substance: LIDOCAINE
     Dosage: LIDOCAINE INFUSIONS
     Route: 065
  4. LIDOCAINE. [Suspect]
     Active Substance: LIDOCAINE
     Indication: TRIGEMINAL NEURALGIA
     Dosage: AT NIGHT LIDOCAINE PATCH/PLASTER
     Route: 065
  5. ACICLOVIR [Suspect]
     Active Substance: ACYCLOVIR
     Indication: PRODUCT USED FOR UNKNOWN INDICATION
     Dosage: UNK
     Route: 065
  6. TAPENTADOL [Suspect]
     Active Substance: TAPENTADOL
     Indication: TRIGEMINAL NEURALGIA
     Dosage: 150-150-200 MG
     Route: 065
  7. AMITRIPTYLINE [Suspect]
     Active Substance: AMITRIPTYLINE
     Dosage: 10 DROPS (WEEK 8) ()
     Route: 065
  8. DEXAMETHASONE. [Suspect]
     Active Substance: DEXAMETHASONE
     Indication: POST HERPETIC NEURALGIA
     Route: 048
  9. OXCARBAZEPINE. [Suspect]
     Active Substance: OXCARBAZEPINE
     Indication: TRIGEMINAL NEURALGIA
     Dosage: 150 MILLIGRAM, QID
     Route: 065
  10. CAPSAICIN. [Suspect]
     Active Substance: CAPSAICIN
     Indication: PRODUCT USED FOR UNKNOWN INDICATION
     Dosage: 8%
     Route: 065
  11. GABAPENTIN. [Suspect]
     Active Substance: GABAPENTIN
     Dosage: 300-300-300
     Route: 065
  12. DEXKETOPROFEN [Concomitant]
     Active Substance: DEXKETOPROFEN
     Indication: POST HERPETIC NEURALGIA
     Dosage: FOR 60 MINUTES
     Route: 050
  13. GABAPENTIN. [Suspect]
     Active Substance: GABAPENTIN
     Indication: TRIGEMINAL NEURALGIA
     Dosage: 600 MILLIGRAM, TID
     Route: 065
  14. TAPENTADOL [Suspect]
     Active Substance: TAPENTADOL
     Dosage: 100-100-200MG
     Route: 065
  15. OXCARBAZEPINE. [Suspect]
     Active Substance: OXCARBAZEPINE
     Dosage: 150 MILLIGRAM, BID
     Route: 065
  16. HYDROMORPHONE [Suspect]
     Active Substance: HYDROMORPHONE
     Indication: TRIGEMINAL NEURALGIA
     Dosage: 4 MILLIGRAM, BID (4-0-4MG)
     Route: 065
  17. GABAPENTIN. [Suspect]
     Active Substance: GABAPENTIN
     Dosage: 600-300-300MG
     Route: 065
  18. GABAPENTIN. [Suspect]
     Active Substance: GABAPENTIN
     Dosage: 2400 MILLIGRAM, DAILY
     Route: 065
  19. AMITRIPTYLINE [Suspect]
     Active Substance: AMITRIPTYLINE
     Indication: TRIGEMINAL NEURALGIA
     Dosage: 20 MG, UNK
     Route: 065

REACTIONS (16)
  - Blood creatinine increased [Unknown]
  - Burning sensation [Unknown]
  - Allodynia [Unknown]
  - Erythema [Unknown]
  - Off label use [Unknown]
  - Drug eruption [Unknown]
  - Post herpetic neuralgia [Recovering/Resolving]
  - Pruritus [Unknown]
  - Intentional product use issue [Unknown]
  - Quality of life decreased [Unknown]
  - Liver function test increased [Unknown]
  - Confusional state [Unknown]
  - Depression [Unknown]
  - Drug ineffective [Unknown]
  - Therapeutic product effect incomplete [Unknown]
  - Hyperaesthesia [Unknown]
